FAERS Safety Report 7561107-3 (Version None)
Quarter: 2011Q2

REPORT INFORMATION
  Report Type: 
  Country: None (occurrence: None)
  Receive Date: 20110621
  Receipt Date: 20110614
  Transmission Date: 20111010
  Serious: Yes (Death, Hospitalization, Other)
  Sender: FDA-Public Use
  Company Number: US-CELGENEUS-163-21880-11061986

PATIENT
  Age: 78 Year
  Sex: Male

DRUGS (6)
  1. METAMUCIL-2 [Concomitant]
     Route: 065
  2. ALBUTEROL SULFATE AUTOHALER [Concomitant]
     Route: 065
  3. POTASSIUM CHLORIDE [Concomitant]
     Route: 065
  4. REVLIMID [Suspect]
     Indication: MULTIPLE MYELOMA
     Dosage: 5 MILLIGRAM
     Route: 048
     Dates: start: 20081001
  5. REVLIMID [Suspect]
     Dosage: 10 MILLIGRAM
     Route: 048
     Dates: start: 20100101, end: 20100801
  6. DOCUSATE [Concomitant]
     Route: 065

REACTIONS (7)
  - PNEUMONIA ASPIRATION [None]
  - HYPERCALCAEMIA [None]
  - DEATH [None]
  - THROMBOSIS [None]
  - HERNIA [None]
  - ASTHENIA [None]
  - RENAL FAILURE ACUTE [None]
